FAERS Safety Report 25280678 (Version 1)
Quarter: 2025Q2

REPORT INFORMATION
  Report Type: Report from Study
  Country: US (occurrence: US)
  Receive Date: 20250508
  Receipt Date: 20250508
  Transmission Date: 20250717
  Serious: Yes (Hospitalization, Other)
  Sender: ABBVIE
  Company Number: US-ABBVIE-6259565

PATIENT
  Age: 76 Year
  Sex: Female
  Weight: 67.131 kg

DRUGS (8)
  1. CREON [Suspect]
     Active Substance: PANCRELIPASE AMYLASE\PANCRELIPASE LIPASE\PANCRELIPASE PROTEASE
     Indication: Pancreatic carcinoma
     Route: 048
     Dates: start: 202401
  2. LANREOTIDE [Concomitant]
     Active Substance: LANREOTIDE
     Indication: Neoplasm prophylaxis
  3. METOPROLOL [Concomitant]
     Active Substance: METOPROLOL
     Indication: Product used for unknown indication
  4. ONDANSETRON [Concomitant]
     Active Substance: ONDANSETRON
     Indication: Nausea
  5. URSODIOL [Concomitant]
     Active Substance: URSODIOL
     Indication: Hepatobiliary disorder prophylaxis
  6. AMLODIPINE [Concomitant]
     Active Substance: AMLODIPINE BESYLATE
     Indication: Hypertension
  7. LATANOPROST [Concomitant]
     Active Substance: LATANOPROST
     Indication: Glaucoma
  8. GABAPENTIN [Concomitant]
     Active Substance: GABAPENTIN
     Indication: Myalgia

REACTIONS (3)
  - Pancreatic stent placement [Recovering/Resolving]
  - Device occlusion [Recovering/Resolving]
  - Fatigue [Recovering/Resolving]

NARRATIVE: CASE EVENT DATE: 20250419
